FAERS Safety Report 19175965 (Version 1)
Quarter: 2021Q2

REPORT INFORMATION
  Report Type: Spontaneous
  Country: US (occurrence: US)
  Receive Date: 20210423
  Receipt Date: 20210423
  Transmission Date: 20210717
  Serious: Yes (Other)
  Sender: FDA-Public Use
  Company Number: US-PURDUE-USA-2021-0249962

PATIENT
  Age: 9 Year
  Sex: Male
  Weight: 3.8 kg

DRUGS (2)
  1. GUANFACINE. [Concomitant]
     Active Substance: GUANFACINE
     Indication: ATTENTION DEFICIT HYPERACTIVITY DISORDER
     Dosage: 1 MG, DAILY
     Route: 065
  2. NON?PMN METHYLPHENIDATE HYDROCHLORIDE [Suspect]
     Active Substance: METHYLPHENIDATE HYDROCHLORIDE
     Indication: ATTENTION DEFICIT HYPERACTIVITY DISORDER
     Dosage: 27 MG, DAILY
     Route: 065

REACTIONS (6)
  - Dystonia [Recovered/Resolved]
  - Dyskinesia [Recovered/Resolved]
  - Cough [Recovered/Resolved]
  - Hyperhidrosis [Recovered/Resolved]
  - Neck pain [Recovered/Resolved]
  - Musculoskeletal discomfort [Recovered/Resolved]
